FAERS Safety Report 7298011-4 (Version None)
Quarter: 2011Q1

REPORT INFORMATION
  Report Type: 
  Country: None (occurrence: None)
  Receive Date: 20110217
  Receipt Date: 20110214
  Transmission Date: 20110831
  Serious: No
  Sender: FDA-Public Use
  Company Number: US-PFIZER INC-2011032834

PATIENT
  Sex: Female
  Weight: 61.224 kg

DRUGS (2)
  1. ADVIL LIQUI-GELS [Suspect]
     Indication: BACK DISORDER
     Dosage: 400 MG, DAILY
     Route: 048
     Dates: start: 20110213
  2. ASPIRIN [Concomitant]
     Dosage: UNK

REACTIONS (2)
  - INCORRECT DOSE ADMINISTERED [None]
  - DRUG INEFFECTIVE [None]
